FAERS Safety Report 14182497 (Version 2)
Quarter: 2017Q4

REPORT INFORMATION
  Report Type: Spontaneous
  Country: US (occurrence: US)
  Receive Date: 20171113
  Receipt Date: 20171114
  Transmission Date: 20180321
  Serious: No
  Sender: FDA-Public Use
  Company Number: US-PFIZER INC-2017486064

PATIENT
  Age: 68 Year
  Sex: Male

DRUGS (1)
  1. PHENELZINE SULFATE. [Suspect]
     Active Substance: PHENELZINE SULFATE
     Indication: DEPRESSION
     Dosage: 45 MG, 1X/DAY (3 PILLS IN THE MORNING)
     Route: 048

REACTIONS (1)
  - Drug ineffective [Recovered/Resolved]
